FAERS Safety Report 12832035 (Version 2)
Quarter: 2016Q4

REPORT INFORMATION
  Report Type: Spontaneous
  Country: US (occurrence: US)
  Receive Date: 20161010
  Receipt Date: 20161207
  Transmission Date: 20170207
  Serious: No
  Sender: FDA-Public Use
  Company Number: PHEH2014US022472

PATIENT
  Sex: Female

DRUGS (1)
  1. TASIGNA [Suspect]
     Active Substance: NILOTINIB
     Indication: CHRONIC MYELOID LEUKAEMIA
     Dosage: 400 MG, BID (12 HOURS)
     Route: 065
     Dates: start: 20141027

REACTIONS (12)
  - Protein total decreased [Unknown]
  - Fatigue [Not Recovered/Not Resolved]
  - Arthralgia [Not Recovered/Not Resolved]
  - Dry skin [Unknown]
  - Blood count abnormal [Unknown]
  - Rash pruritic [Not Recovered/Not Resolved]
  - Erythema [Unknown]
  - Nausea [Not Recovered/Not Resolved]
  - Alanine aminotransferase decreased [Unknown]
  - Hepatic enzyme increased [Not Recovered/Not Resolved]
  - Myalgia [Not Recovered/Not Resolved]
  - Rash erythematous [Not Recovered/Not Resolved]
